FAERS Safety Report 8609322-1 (Version None)
Quarter: 2012Q3

REPORT INFORMATION
  Report Type: 
  Country: None (occurrence: None)
  Receive Date: 20120821
  Receipt Date: 20120817
  Transmission Date: 20120928
  Serious: Yes (Death)
  Sender: FDA-Public Use
  Company Number: PHHY2012GB071751

PATIENT
  Age: 3 Month
  Sex: Male

DRUGS (3)
  1. METHADONE HYDROCHLORIDE [Suspect]
  2. HEROIN [Concomitant]
  3. ANTIDEPRESSANTS [Concomitant]

REACTIONS (1)
  - DEATH [None]
